FAERS Safety Report 5788845-7 (Version None)
Quarter: 2008Q2

REPORT INFORMATION
  Report Type: 
  Country: None (occurrence: None)
  Receive Date: 20080626
  Receipt Date: 20080623
  Transmission Date: 20081010
  Serious: Yes (Life-Threatening)
  Sender: FDA-Public Use
  Company Number: FR-RB-001869-08

PATIENT
  Age: 34 Year

DRUGS (1)
  1. SUBUTEX [Suspect]
     Indication: DRUG THERAPY
     Dosage: SUBUTEX TAKEN BY PO ROUTE, INJECTION, AND SPLITTING DOSES.
     Dates: start: 20060526

REACTIONS (4)
  - INJECTION SITE ABSCESS [None]
  - INJECTION SITE PHLEBITIS [None]
  - OFF LABEL USE [None]
  - WRONG TECHNIQUE IN DRUG USAGE PROCESS [None]
